FAERS Safety Report 8274079-3 (Version None)
Quarter: 2012Q2

REPORT INFORMATION
  Report Type: 
  Country: None (occurrence: None)
  Receive Date: 20120406
  Receipt Date: 20120406
  Transmission Date: 20120825
  Serious: Yes (Disabling, Other)
  Sender: FDA-Public Use
  Company Number: None

PATIENT
  Age: 58 Year
  Sex: Female
  Weight: 58.0604 kg

DRUGS (1)
  1. AVELOX [Suspect]
     Indication: LUNG INFECTION
     Dosage: 1 TABLET 1 PER DAY BY MOUTH
     Route: 048
     Dates: start: 20111027, end: 20111030

REACTIONS (7)
  - PAIN [None]
  - NEURITIS [None]
  - MUSCULOSKELETAL STIFFNESS [None]
  - MUSCULAR WEAKNESS [None]
  - HYPOAESTHESIA [None]
  - PAIN IN EXTREMITY [None]
  - PARAESTHESIA [None]
